FAERS Safety Report 18470704 (Version 1)
Quarter: 2020Q4

REPORT INFORMATION
  Report Type: Report from Study
  Country: JP (occurrence: JP)
  Receive Date: 20201106
  Receipt Date: 20201106
  Transmission Date: 20210114
  Serious: Yes (Other)
  Sender: FDA-Public Use
  Company Number: JP-ADVANZ PHARMA-202010009825

PATIENT

DRUGS (69)
  1. ZONISAMIDE. [Suspect]
     Active Substance: ZONISAMIDE
     Dosage: 250 MG, QD, TABLET
     Route: 048
     Dates: start: 20200303, end: 20200412
  2. ZONISAMIDE. [Suspect]
     Active Substance: ZONISAMIDE
     Dosage: 350 MG, QD, TABLET
     Route: 048
     Dates: start: 20200413, end: 20200424
  3. FYCOMPA [Suspect]
     Active Substance: PERAMPANEL
     Dosage: 4 MG, QD
     Route: 048
     Dates: start: 20190604, end: 20190905
  4. FYCOMPA [Suspect]
     Active Substance: PERAMPANEL
     Dosage: 6 MG, QD
     Route: 048
     Dates: start: 20190906, end: 20200207
  5. RIVOTRIL [Suspect]
     Active Substance: CLONAZEPAM
     Dosage: 1.5 MG, QD
     Route: 048
     Dates: start: 20190125, end: 20190418
  6. RIVOTRIL [Suspect]
     Active Substance: CLONAZEPAM
     Dosage: 1.5 MG, QD
     Route: 048
     Dates: start: 20191101, end: 20191114
  7. RIVOTRIL [Suspect]
     Active Substance: CLONAZEPAM
     Dosage: 2 MG, QD
     Route: 048
     Dates: start: 20191115, end: 20191201
  8. VIMPAT [Suspect]
     Active Substance: LACOSAMIDE
     Dosage: 250 MG, QD
     Route: 048
     Dates: start: 20190713, end: 20190715
  9. DAIKENCHUTO [Concomitant]
     Active Substance: HERBALS
     Dosage: UNK
  10. WAKOBITAL [Concomitant]
     Indication: EPILEPSY
  11. TAMIFLU [Concomitant]
     Active Substance: OSELTAMIVIR PHOSPHATE
  12. TRICLORY [Concomitant]
  13. CERCINE [Concomitant]
     Active Substance: DIAZEPAM
     Indication: PARTIAL SEIZURES
     Dosage: UNK
     Dates: start: 20200410, end: 20200410
  14. FYCOMPA [Suspect]
     Active Substance: PERAMPANEL
     Dosage: 3 MG, QD
     Route: 048
     Dates: start: 20200208, end: 20200423
  15. RIVOTRIL [Suspect]
     Active Substance: CLONAZEPAM
     Dosage: 3 MG, QD
     Route: 048
     Dates: start: 20191212, end: 20200325
  16. RIVOTRIL [Suspect]
     Active Substance: CLONAZEPAM
     Dosage: 6 MG, QD
     Route: 048
     Dates: start: 20200618
  17. VIMPAT [Suspect]
     Active Substance: LACOSAMIDE
     Indication: PARTIAL SEIZURES
     Dosage: 70 MG, QD
     Route: 048
     Dates: start: 20181217, end: 20181225
  18. ESCRE [Concomitant]
     Active Substance: CHLORAL HYDRATE
     Indication: EPILEPSY
  19. MUCODYNE [Concomitant]
     Active Substance: CARBOCYSTEINE
  20. FYCOMPA [Suspect]
     Active Substance: PERAMPANEL
     Dosage: 6 MG, QD
     Route: 048
     Dates: start: 20200618
  21. PHENOBAL [Suspect]
     Active Substance: PHENOBARBITAL
     Indication: PARTIAL SEIZURES
     Dosage: 120 MG, QD
     Route: 048
  22. PHENOBAL [Suspect]
     Active Substance: PHENOBARBITAL
     Dosage: 180 MG, QD
     Route: 048
     Dates: start: 20200413
  23. RIVOTRIL [Suspect]
     Active Substance: CLONAZEPAM
     Dosage: 1.5 MG, QD
     Route: 048
     Dates: start: 20190520, end: 20190613
  24. RIVOTRIL [Suspect]
     Active Substance: CLONAZEPAM
     Dosage: 2 MG, QD
     Route: 048
     Dates: start: 20190919, end: 20191006
  25. VIMPAT [Suspect]
     Active Substance: LACOSAMIDE
     Indication: EPILEPSY
     Dosage: 100 MG, QD
     Route: 048
     Dates: start: 20181226, end: 20190124
  26. VIMPAT [Suspect]
     Active Substance: LACOSAMIDE
     Dosage: 200 MG, QD
     Route: 048
     Dates: start: 20190208, end: 20190221
  27. VIMPAT [Suspect]
     Active Substance: LACOSAMIDE
     Dosage: 250 MG, QD
     Route: 048
     Dates: start: 20190222, end: 20190307
  28. VIMPAT [Suspect]
     Active Substance: LACOSAMIDE
     Dosage: 350 MG, QD
     Route: 048
     Dates: start: 20190323, end: 20190404
  29. MALT EXTRACT [Concomitant]
  30. LAXOBERON [Concomitant]
     Active Substance: SODIUM PICOSULFATE
  31. ZONISAMIDE. [Suspect]
     Active Substance: ZONISAMIDE
     Dosage: 400 MG, QD, TABLET
     Route: 048
     Dates: start: 20200425
  32. FYCOMPA [Suspect]
     Active Substance: PERAMPANEL
     Dosage: 5 MG, QD
     Route: 048
     Dates: start: 20180910, end: 20190603
  33. INOVELON [Suspect]
     Active Substance: RUFINAMIDE
     Indication: PARTIAL SEIZURES
     Dosage: 1600 MG, QD
     Route: 048
  34. RIVOTRIL [Suspect]
     Active Substance: CLONAZEPAM
     Dosage: 1 MG, QD
     Route: 048
     Dates: start: 20191007, end: 20191031
  35. RIVOTRIL [Suspect]
     Active Substance: CLONAZEPAM
     Dosage: 2.5 MG, QD
     Route: 048
     Dates: start: 20191202, end: 20191211
  36. RIVOTRIL [Suspect]
     Active Substance: CLONAZEPAM
     Dosage: 5 MG, QD
     Route: 048
     Dates: start: 20200401, end: 20200427
  37. ESCRE [Concomitant]
     Active Substance: CHLORAL HYDRATE
     Indication: PARTIAL SEIZURES
  38. DIAPP [Concomitant]
     Active Substance: DIAZEPAM
     Indication: PARTIAL SEIZURES
  39. FYCOMPA [Suspect]
     Active Substance: PERAMPANEL
     Dosage: 6 MG, QD
     Route: 048
     Dates: start: 20180821, end: 20180909
  40. INOVELON [Suspect]
     Active Substance: RUFINAMIDE
     Dosage: 1700 MG, QD
     Route: 048
     Dates: start: 20180627, end: 20180717
  41. RIVOTRIL [Suspect]
     Active Substance: CLONAZEPAM
     Indication: EPILEPSY
     Dosage: 2 MG, QD
     Route: 048
     Dates: start: 20190111, end: 20190124
  42. RIVOTRIL [Suspect]
     Active Substance: CLONAZEPAM
     Dosage: 2.5 MG, QD
     Route: 048
     Dates: start: 20190628, end: 20190711
  43. RIVOTRIL [Suspect]
     Active Substance: CLONAZEPAM
     Dosage: 4 MG, QD
     Route: 048
     Dates: start: 20200326, end: 20200331
  44. VIMPAT [Suspect]
     Active Substance: LACOSAMIDE
     Dosage: 300 MG, QD
     Route: 048
     Dates: start: 20190716
  45. MOVICOL [Concomitant]
     Active Substance: POLYETHYLENE GLYCOL 3350\POTASSIUM CHLORIDE\SODIUM BICARBONATE\SODIUM CHLORIDE
  46. SUCRALFATE HYDRATE [Concomitant]
     Active Substance: SUCRALFATE
  47. ZONISAMIDE. [Suspect]
     Active Substance: ZONISAMIDE
     Indication: EPILEPSY
     Dosage: 255 MG, QD, TABLET
     Route: 048
     Dates: start: 20190717, end: 20200302
  48. INOVELON [Suspect]
     Active Substance: RUFINAMIDE
     Dosage: 1800 MG, QD
     Route: 048
     Dates: start: 20180718, end: 202005
  49. PHENOBAL [Suspect]
     Active Substance: PHENOBARBITAL
     Indication: EPILEPSY
     Dosage: 150 MG, QD
     Route: 048
     Dates: start: 20200303, end: 20200412
  50. RIVOTRIL [Suspect]
     Active Substance: CLONAZEPAM
     Dosage: 1 MG, QD
     Route: 048
     Dates: start: 20190419, end: 20190519
  51. RIVOTRIL [Suspect]
     Active Substance: CLONAZEPAM
     Dosage: 2 MG, QD
     Route: 048
     Dates: start: 20190614, end: 20190627
  52. VIMPAT [Suspect]
     Active Substance: LACOSAMIDE
     Dosage: 150 MG, QD
     Route: 048
     Dates: start: 20190125, end: 20190207
  53. VIMPAT [Suspect]
     Active Substance: LACOSAMIDE
     Dosage: 300 MG, QD
     Route: 048
     Dates: start: 20190308, end: 20190322
  54. VIMPAT [Suspect]
     Active Substance: LACOSAMIDE
     Dosage: 400 MG, QD
     Route: 048
     Dates: start: 20190405, end: 20190628
  55. VIMPAT [Suspect]
     Active Substance: LACOSAMIDE
     Dosage: 300 MG, QD
     Route: 048
     Dates: start: 20190629, end: 20190712
  56. DIAPP [Concomitant]
     Active Substance: DIAZEPAM
     Indication: EPILEPSY
  57. ANHIBA [Concomitant]
     Active Substance: ACETAMINOPHEN
  58. MIDAFRESA [Concomitant]
     Indication: PARTIAL SEIZURES
     Dosage: UNK
     Dates: start: 20200402, end: 20200410
  59. CERCINE [Concomitant]
     Active Substance: DIAZEPAM
     Indication: EPILEPSY
  60. FYCOMPA [Suspect]
     Active Substance: PERAMPANEL
     Indication: PARTIAL SEIZURES
     Dosage: 4 MG, QD
     Route: 048
     Dates: start: 20180807, end: 20180820
  61. MAGNESIUM OXIDE. [Concomitant]
     Active Substance: MAGNESIUM OXIDE
     Dosage: UNK
  62. WAKOBITAL [Concomitant]
     Indication: PARTIAL SEIZURES
  63. MIDAFRESA [Concomitant]
     Indication: EPILEPSY
     Dosage: UNK
  64. ZONISAMIDE. [Suspect]
     Active Substance: ZONISAMIDE
     Indication: PARTIAL SEIZURES
     Dosage: 250 MG, QD, TABLET
     Route: 048
  65. FYCOMPA [Suspect]
     Active Substance: PERAMPANEL
     Indication: EPILEPSY
     Dosage: 2 MG, QD
     Route: 048
     Dates: start: 20180724, end: 20180806
  66. RIVOTRIL [Suspect]
     Active Substance: CLONAZEPAM
     Indication: PARTIAL SEIZURES
     Dosage: 2.5 MG, QD
     Route: 048
  67. RIVOTRIL [Suspect]
     Active Substance: CLONAZEPAM
     Dosage: 3 MG, QD
     Route: 048
     Dates: start: 20190712, end: 20190918
  68. LAC-B [Concomitant]
     Active Substance: BIFIDOBACTERIUM SPP.
  69. PULLSMALIN R [Concomitant]

REACTIONS (1)
  - Epilepsy [Recovered/Resolved]

NARRATIVE: CASE EVENT DATE: 202003
